FAERS Safety Report 23702074 (Version 1)
Quarter: 2024Q2

REPORT INFORMATION
  Report Type: Spontaneous
  Country: JP (occurrence: JP)
  Receive Date: 20240403
  Receipt Date: 20240403
  Transmission Date: 20240716
  Serious: Yes (Other)
  Sender: FDA-Public Use
  Company Number: JP-JNJFOC-20240214716

PATIENT
  Age: 79 Year
  Sex: Male

DRUGS (9)
  1. TREMFYA [Suspect]
     Active Substance: GUSELKUMAB
     Indication: Psoriasis
     Dosage: DOSE UNKNOWN
     Route: 058
     Dates: start: 202312, end: 2024
  2. TREMFYA [Suspect]
     Active Substance: GUSELKUMAB
  3. TREMFYA [Suspect]
     Active Substance: GUSELKUMAB
  4. LEVOTHYROXINE [Concomitant]
     Active Substance: LEVOTHYROXINE\LEVOTHYROXINE SODIUM
     Dosage: DOSE UNKNOWN
     Route: 065
  5. PREDONINE [Concomitant]
     Active Substance: PREDNISOLONE
     Route: 065
  6. URSODIOL [Concomitant]
     Active Substance: URSODIOL
     Dosage: DOSE UNKNOWN
     Route: 065
  7. RABEPRAZOLE SODIUM [Concomitant]
     Active Substance: RABEPRAZOLE SODIUM
     Dosage: DOSE UNKNOWN
     Route: 065
  8. SODIUM FERROUS CITRATE [Concomitant]
     Active Substance: SODIUM FERROUS CITRATE
     Dosage: DOSE UNKNOWN
     Route: 065
  9. AMLODIPINE [Concomitant]
     Active Substance: AMLODIPINE BESYLATE
     Dosage: DOSE UNKNOWN
     Route: 065

REACTIONS (2)
  - Small intestine carcinoma [Unknown]
  - KL-6 increased [Unknown]

NARRATIVE: CASE EVENT DATE: 20240101
